FAERS Safety Report 25246103 (Version 1)
Quarter: 2025Q2

REPORT INFORMATION
  Report Type: Spontaneous
  Country: CA (occurrence: CA)
  Receive Date: 20250428
  Receipt Date: 20250428
  Transmission Date: 20250716
  Serious: Yes (Hospitalization, Other)
  Sender: PFIZER
  Company Number: CA-PFIZER INC-202500070581

PATIENT
  Age: 88 Year
  Sex: Male

DRUGS (1)
  1. VYNDAQEL [Suspect]
     Active Substance: TAFAMIDIS MEGLUMINE
     Indication: Cardiac amyloidosis
     Dosage: 80 MG, 1X/DAY
     Route: 048
     Dates: start: 20211130

REACTIONS (5)
  - Upper respiratory tract infection [Unknown]
  - Neuropathy peripheral [Unknown]
  - Movement disorder [Unknown]
  - Left ventricular hypertrophy [Unknown]
  - Loss of personal independence in daily activities [Unknown]
